FAERS Safety Report 5881486-2 (Version None)
Quarter: 2008Q3

REPORT INFORMATION
  Report Type: 
  Country: None (occurrence: None)
  Receive Date: 20080912
  Receipt Date: 20080702
  Transmission Date: 20090109
  Serious: No
  Sender: FDA-Public Use
  Company Number: US-ABBOTT-08P-163-0460574-00

PATIENT
  Sex: Male

DRUGS (10)
  1. HUMIRA [Suspect]
     Indication: ANKYLOSING SPONDYLITIS
     Route: 058
     Dates: start: 20080101, end: 20080601
  2. OXYPROSIN [Concomitant]
     Indication: ANKYLOSING SPONDYLITIS
     Route: 048
  3. PREGABALIN [Concomitant]
     Indication: ANKYLOSING SPONDYLITIS
     Route: 048
  4. TRAMADOL HCL [Concomitant]
     Indication: ANKYLOSING SPONDYLITIS
     Route: 048
  5. CETIRIZINE HYDROCHLORIDE [Concomitant]
     Indication: ANKYLOSING SPONDYLITIS
     Route: 048
  6. DIOVAN W/ HCTZ [Concomitant]
     Indication: HYPERTENSION
     Dosage: 160/12.5MG
     Route: 048
  7. METOPROLOL SUCONATE [Concomitant]
     Indication: HYPERTENSION
     Route: 048
  8. ACETYLSALICYLIC ACID SRT [Concomitant]
     Indication: DRUG USE FOR UNKNOWN INDICATION
     Dosage: RECOMMENDED BY CARDIOLOGIST
     Route: 048
  9. RAMIDIDINE [Concomitant]
     Indication: GASTROOESOPHAGEAL REFLUX DISEASE
     Route: 048
  10. TIOTROPIUM BROMIDE [Concomitant]
     Indication: CHRONIC OBSTRUCTIVE PULMONARY DISEASE
     Route: 055

REACTIONS (1)
  - EAR INFECTION [None]
